FAERS Safety Report 9097740 (Version 7)
Quarter: 2014Q2

REPORT INFORMATION
  Report Type: Report from Study
  Country: GB (occurrence: GB)
  Receive Date: 20130212
  Receipt Date: 20140604
  Transmission Date: 20141212
  Serious: Yes (Other)
  Sender: FDA-Public Use
  Company Number: GB-CELGENEUS-167-C5013-12121986

PATIENT
  Age: 72 Year
  Sex: Male

DRUGS (5)
  1. PLACEBO [Suspect]
     Indication: PLASMA CELL MYELOMA
     Dosage: 10 MILLIGRAM
     Route: 048
     Dates: start: 20071115
  2. PLACEBO [Suspect]
     Dosage: 15 MILLIGRAM
     Route: 048
     Dates: end: 20130220
  3. REVLIMID [Suspect]
     Indication: PLASMA CELL MYELOMA
     Dosage: 15 MILLIGRAM
     Route: 048
     Dates: end: 20130220
  4. MELPHALAN [Suspect]
     Indication: PLASMA CELL MYELOMA
     Route: 065
  5. PREDNISONE [Suspect]
     Indication: PLASMA CELL MYELOMA
     Route: 065

REACTIONS (2)
  - Squamous cell carcinoma of skin [Recovered/Resolved]
  - Ear infection [Recovered/Resolved]
